FAERS Safety Report 6056804-5 (Version None)
Quarter: 2009Q1

REPORT INFORMATION
  Report Type: 
  Country: None (occurrence: None)
  Receive Date: 20090126
  Receipt Date: 20090126
  Transmission Date: 20090719
  Serious: Yes (Other)
  Sender: FDA-Public Use
  Company Number: None

PATIENT
  Age: 68 Year
  Sex: Female

DRUGS (6)
  1. FENTANYL-75 [Suspect]
     Indication: CANCER PAIN
     Dosage: REPORTED, INDWELLING CONTINUOUS IT
     Route: 037
     Dates: start: 20080601, end: 20080601
  2. FENTANYL-75 [Suspect]
     Indication: BREAKTHROUGH PAIN
     Dosage: 25MCG/HR BASAL, 15MCG LOCKOUT PCA IV DRIP
     Route: 041
     Dates: start: 20080601, end: 20080601
  3. . [Concomitant]
  4. HYDROCODONE BITARTRATE + ACETAMINOPHEN [Concomitant]
  5. . [Concomitant]
  6. LORAZEPAM ORAL [Concomitant]

REACTIONS (1)
  - RESPIRATORY DEPRESSION [None]
